FAERS Safety Report 8177552 (Version 4)
Quarter: 2013Q1

REPORT INFORMATION
  Report Type: Spontaneous
  Country: JP (occurrence: JP)
  Receive Date: 20111012
  Receipt Date: 20130302
  Transmission Date: 20140127
  Serious: Yes (Hospitalization)
  Sender: FDA-Public Use
  Company Number: PHHY2011JP86967

PATIENT
  Age: 71 Year
  Sex: Female
  Weight: 55 kg

DRUGS (21)
  1. TEGRETOL [Suspect]
     Indication: TRIGEMINAL NEURALGIA
     Dosage: 200 MG, TID
     Route: 048
     Dates: start: 20110403, end: 20110506
  2. DIOVAN [Suspect]
     Indication: HYPERTENSION
     Dosage: 80 MG, DAILY
     Dates: start: 20110420, end: 20111009
  3. LANSOPRAZOLE [Suspect]
     Indication: PROPHYLAXIS
     Dosage: 15 MG, QD
     Route: 048
     Dates: start: 20110404, end: 20110605
  4. PITAVASTATIN CALCIUM [Suspect]
     Indication: HYPERLIPIDAEMIA
     Dosage: 2 MG, QD
     Route: 048
     Dates: start: 20110405, end: 20110506
  5. BAYASPIRIN [Suspect]
     Indication: ANGINA UNSTABLE
     Dosage: 100 MG, QD
     Route: 048
     Dates: start: 20110404
  6. PLAVIX [Suspect]
     Indication: ANGINA UNSTABLE
     Dosage: 75 MG, QD
     Route: 048
     Dates: start: 20110404, end: 20110420
  7. SOLU MEDROL [Concomitant]
     Dosage: 160 MG, UNK
  8. SOLU MEDROL [Concomitant]
     Dosage: 80 MG, UNK
     Dates: start: 20110524
  9. SOLU MEDROL [Concomitant]
     Dosage: 40 MG, UNK
     Dates: start: 20110528, end: 20110529
  10. SOLU MEDROL [Concomitant]
     Dosage: 80 MG, UNK
     Dates: start: 20110606
  11. SOLU MEDROL [Concomitant]
     Dosage: 320 MG, UNK
     Dates: start: 20110607
  12. SOLU MEDROL [Concomitant]
     Dosage: 400 MG, UNK
     Dates: start: 20110608
  13. SOLU MEDROL [Concomitant]
     Dosage: 200 MG, UNK
     Dates: start: 20110610
  14. SOLU MEDROL [Concomitant]
     Dosage: 120 MG, UNK
     Dates: start: 20110611, end: 20110612
  15. LACTATED RINGER^S INJECTION [Concomitant]
     Dosage: 20 ML/HOURS
     Dates: start: 20110606, end: 20110608
  16. NORMAL SALINE [Concomitant]
     Dosage: 20 ML/HOURS
     Dates: start: 20110608
  17. SOLDEM 1 [Concomitant]
     Dosage: 20 ML/HOUR
     Dates: start: 20110611, end: 20110611
  18. PREDNISOLONE [Concomitant]
     Dosage: 50 MG, UNK
     Dates: start: 20110612
  19. PREDNISOLONE [Concomitant]
     Dosage: 30 MG, UNK
     Dates: start: 20110614
  20. PREDNISOLONE [Concomitant]
     Dosage: 15 MG, UNK
     Dates: start: 20110616, end: 20110617
  21. AMLODIN OD [Concomitant]
     Indication: HYPERTENSION
     Dosage: 2.5 MG, UNK
     Route: 048
     Dates: start: 20110420

REACTIONS (4)
  - Interstitial lung disease [Unknown]
  - Liver disorder [Recovered/Resolved]
  - Tubulointerstitial nephritis [Recovering/Resolving]
  - Rash [Unknown]
